FAERS Safety Report 15959514 (Version 2)
Quarter: 2019Q1

REPORT INFORMATION
  Report Type: Report from Study
  Country: FR (occurrence: FR)
  Receive Date: 20190214
  Receipt Date: 20190227
  Transmission Date: 20190417
  Serious: Yes (Death, Hospitalization, Other)
  Sender: FDA-Public Use
  Company Number: FR-ACCORD-106128

PATIENT
  Age: 48 Year
  Sex: Female

DRUGS (5)
  1. LEUCOVORIN. [Suspect]
     Active Substance: LEUCOVORIN
     Indication: COLORECTAL CANCER METASTATIC
     Route: 041
     Dates: start: 20151002, end: 20151002
  2. PRIMPERAN [Concomitant]
     Active Substance: METOCLOPRAMIDE HYDROCHLORIDE
  3. POLYSILANE [Concomitant]
     Route: 065
     Dates: start: 20151002
  4. FLUOROURACIL. [Suspect]
     Active Substance: FLUOROURACIL
     Indication: COLORECTAL CANCER METASTATIC
     Dosage: ALSO RECEIVED DOSE: 1700 MG CYCLICALLY ON 02-OCT-2015 BY INTRAVENOUS DRIP
     Route: 040
     Dates: start: 20151002, end: 20151002
  5. IRINOTECAN [Suspect]
     Active Substance: IRINOTECAN
     Indication: COLORECTAL CANCER METASTATIC
     Route: 041
     Dates: start: 20151002, end: 20151002

REACTIONS (7)
  - Oedema peripheral [Not Recovered/Not Resolved]
  - Vomiting [Recovered/Resolved]
  - Diarrhoea [Recovered/Resolved]
  - Asthenia [Not Recovered/Not Resolved]
  - Sepsis [Fatal]
  - Venoocclusive disease [Fatal]
  - Melaena [Recovered/Resolved]

NARRATIVE: CASE EVENT DATE: 20151003
